FAERS Safety Report 7008906-4 (Version None)
Quarter: 2010Q3

REPORT INFORMATION
  Report Type: 
  Country: None (occurrence: None)
  Receive Date: 20100923
  Receipt Date: 20100913
  Transmission Date: 20110219
  Serious: Yes (Other)
  Sender: FDA-Public Use
  Company Number: US-SP-2010-03914

PATIENT
  Sex: Female

DRUGS (2)
  1. RABIES VACCINE [Suspect]
     Indication: IMMUNISATION
     Route: 065
     Dates: start: 20100718, end: 20100718
  2. IMMUNE GLOBULIN (HUMAN) [Suspect]
     Indication: IMMUNISATION
     Route: 050
     Dates: start: 20100718, end: 20100718

REACTIONS (3)
  - HYPERHIDROSIS [None]
  - LOSS OF CONSCIOUSNESS [None]
  - TACHYPNOEA [None]
